FAERS Safety Report 21969320 (Version 1)
Quarter: 2023Q1

REPORT INFORMATION
  Report Type: Spontaneous
  Country: US (occurrence: None)
  Receive Date: 20230207
  Receipt Date: 20230207
  Transmission Date: 20230418
  Serious: Yes (Disabling)
  Sender: FDA-Public Use
  Company Number: None

PATIENT
  Age: 22 Year
  Sex: Male
  Weight: 76.5 kg

DRUGS (2)
  1. TRIAMCINOLONE ACETONIDE [Suspect]
     Active Substance: TRIAMCINOLONE ACETONIDE
     Indication: Dermatitis atopic
     Dosage: OTHER QUANTITY : 80 GRAMS;?FREQUENCY : DAILY;?
     Route: 061
     Dates: start: 20220128, end: 20221008
  2. DESONIDE [Suspect]
     Active Substance: DESONIDE

REACTIONS (14)
  - Topical steroid withdrawal reaction [None]
  - Erythema [None]
  - Erythema [None]
  - Erythema [None]
  - Erythema [None]
  - Dry skin [None]
  - Skin exfoliation [None]
  - Condition aggravated [None]
  - Rash [None]
  - Rash [None]
  - Rash [None]
  - Lymphadenopathy [None]
  - Pruritus [None]
  - Burning sensation [None]

NARRATIVE: CASE EVENT DATE: 20221007
